FAERS Safety Report 17904783 (Version 1)
Quarter: 2020Q2

REPORT INFORMATION
  Report Type: Spontaneous
  Country: US (occurrence: US)
  Receive Date: 20200616
  Receipt Date: 20200616
  Transmission Date: 20200714
  Serious: No
  Sender: FDA-Public Use
  Company Number: US-ROCHE-2558545

PATIENT
  Age: 77 Year
  Sex: Male

DRUGS (1)
  1. ACTEMRA [Suspect]
     Active Substance: TOCILIZUMAB
     Indication: TEMPORAL ARTERITIS
     Dosage: WEEKLY EVERY MONDAY
     Route: 065
     Dates: start: 20191202

REACTIONS (4)
  - Product availability issue [Unknown]
  - Product dose omission [Unknown]
  - No adverse event [Unknown]
  - Device use issue [Unknown]

NARRATIVE: CASE EVENT DATE: 20200224
